FAERS Safety Report 9596366 (Version 3)
Quarter: 2014Q1

REPORT INFORMATION
  Report Type: Spontaneous
  Country: US (occurrence: US)
  Receive Date: 20131004
  Receipt Date: 20140311
  Transmission Date: 20141002
  Serious: Yes (Hospitalization)
  Sender: FDA-Public Use
  Company Number: US-ACTELION-A-US2013-89157

PATIENT
  Age: 68 Year
  Sex: Male

DRUGS (1)
  1. VELETRI [Suspect]
     Indication: COR PULMONALE CHRONIC
     Dosage: 10 NG/KG, PER MIN
     Route: 041
     Dates: start: 20130822

REACTIONS (8)
  - Photopsia [Unknown]
  - Atrial fibrillation [Unknown]
  - Tachycardia [Unknown]
  - Dyspnoea [Unknown]
  - Headache [Unknown]
  - Speech disorder [Unknown]
  - Abnormal faeces [Unknown]
  - Chest pain [Recovered/Resolved]
